FAERS Safety Report 4607668-5 (Version None)
Quarter: 2005Q2

REPORT INFORMATION
  Report Type: 
  Country: None (occurrence: None)
  Receive Date: 20050228
  Receipt Date: 20050125
  Transmission Date: 20051028
  Serious: No
  Sender: FDA-Public Use
  Company Number: FABR-10836

PATIENT
  Age: 21 Year
  Sex: Male
  Weight: 70.5 kg

DRUGS (5)
  1. FABRAZYME [Suspect]
     Indication: FABRY'S DISEASE
     Dosage: 1 MG/KG Q2WKS IV
     Route: 042
     Dates: start: 20040820
  2. TEGRETOL [Concomitant]
  3. TYLENOL PM [Concomitant]
  4. ALLEGRA [Concomitant]
  5. TYLENOL [Concomitant]

REACTIONS (4)
  - BLOOD PRESSURE INCREASED [None]
  - BODY TEMPERATURE INCREASED [None]
  - CHILLS [None]
  - COLD SWEAT [None]
